FAERS Safety Report 14468113 (Version 1)
Quarter: 2018Q1

REPORT INFORMATION
  Report Type: Report from Study
  Country: DE (occurrence: DE)
  Receive Date: 20180131
  Receipt Date: 20180131
  Transmission Date: 20180509
  Serious: Yes (Hospitalization)
  Sender: FDA-Public Use
  Company Number: DE-TEVA-2018-DE-850032

PATIENT
  Age: 69 Year
  Sex: Male
  Weight: 97 kg

DRUGS (3)
  1. GEMCITABINE [Suspect]
     Active Substance: GEMCITABINE\GEMCITABINE HYDROCHLORIDE
     Indication: PANCREATIC CARCINOMA
     Dosage: 1726 MILLIGRAM DAILY; 1726 MILLIGRAM
     Route: 065
     Dates: start: 20170627, end: 20170803
  2. ABRAXANE [Suspect]
     Active Substance: PACLITAXEL
     Indication: PANCREATIC CARCINOMA
     Dosage: 216 MILLIGRAM DAILY; 216 MILLIGRAM
     Route: 041
     Dates: start: 20170627, end: 20170704
  3. ABRAXANE [Suspect]
     Active Substance: PACLITAXEL
     Dosage: 216 MILLIGRAM DAILY; 216 MILLIGRAM
     Route: 065
     Dates: end: 20170803

REACTIONS (4)
  - Vomiting [Recovered/Resolved]
  - Leukopenia [Recovered/Resolved]
  - Thrombocytopenia [Recovered/Resolved]
  - Anaemia [Not Recovered/Not Resolved]

NARRATIVE: CASE EVENT DATE: 20170706
